FAERS Safety Report 8289782-9 (Version None)
Quarter: 2012Q2

REPORT INFORMATION
  Report Type: 
  Country: None (occurrence: None)
  Receive Date: 20120417
  Receipt Date: 20120412
  Transmission Date: 20120825
  Serious: No
  Sender: FDA-Public Use
  Company Number: US-PFIZER INC-2012092417

PATIENT
  Sex: Female
  Weight: 47.619 kg

DRUGS (1)
  1. IBUPROFEN (ADVIL) [Suspect]
     Indication: MUSCLE DISORDER
     Dosage: 200 MG, DAILY
     Dates: end: 20120412

REACTIONS (2)
  - NAUSEA [None]
  - ABDOMINAL DISCOMFORT [None]
